FAERS Safety Report 8241433-5 (Version None)
Quarter: 2012Q1

REPORT INFORMATION
  Report Type: 
  Country: None (occurrence: None)
  Receive Date: 20120328
  Receipt Date: 20120319
  Transmission Date: 20120608
  Serious: Yes (Hospitalization)
  Sender: FDA-Public Use
  Company Number: DE-ABBOTT-12P-062-0916498-00

PATIENT
  Age: 69 Year
  Sex: Female

DRUGS (9)
  1. HUMIRA [Suspect]
     Indication: RHEUMATOID ARTHRITIS
     Route: 058
     Dates: start: 20081001, end: 20090303
  2. TRAMADOL HCL [Concomitant]
     Indication: PRODUCT USED FOR UNKNOWN INDICATION
     Dosage: 150MG DAILY
     Dates: start: 20090301, end: 20090301
  3. METHOTREXATE [Suspect]
     Indication: RHEUMATOID ARTHRITIS
     Dates: start: 20020601, end: 20090303
  4. RAMIPRIL [Concomitant]
     Indication: PRODUCT USED FOR UNKNOWN INDICATION
     Dosage: 10MG DAILY
  5. HCQ/CQ [Concomitant]
     Indication: RHEUMATOID ARTHRITIS
     Dosage: 200MG DAILY
     Dates: start: 20040301
  6. HUMIRA [Suspect]
     Dates: start: 20090330, end: 20090701
  7. METHOTREXATE [Suspect]
     Dates: start: 20090323
  8. CLEXANE 40 [Concomitant]
     Indication: PRODUCT USED FOR UNKNOWN INDICATION
     Dates: start: 20090301, end: 20090301
  9. BISOPROLOL FUMARATE [Concomitant]
     Indication: PRODUCT USED FOR UNKNOWN INDICATION
     Dosage: 5MG DAILY

REACTIONS (5)
  - PNEUMONIA [None]
  - HYPERTENSIVE HEART DISEASE [None]
  - GENERAL PHYSICAL HEALTH DETERIORATION [None]
  - HYPERTENSIVE CRISIS [None]
  - CARDIAC HYPERTROPHY [None]
